FAERS Safety Report 5913906-9 (Version None)
Quarter: 2008Q4

REPORT INFORMATION
  Report Type: 
  Country: None (occurrence: None)
  Receive Date: 20081009
  Receipt Date: 20081001
  Transmission Date: 20090506
  Serious: Yes (Hospitalization)
  Sender: FDA-Public Use
  Company Number: B0539586A

PATIENT
  Age: 74 Year
  Sex: Male

DRUGS (10)
  1. AUGMENTIN '125' [Suspect]
     Indication: ANTIBIOTIC THERAPY
     Dosage: 1G TWICE PER DAY
     Route: 048
     Dates: start: 20080603, end: 20080604
  2. ROVAMYCINE [Suspect]
     Indication: ANTIBIOTIC THERAPY
     Dosage: 3IU6 THREE TIMES PER DAY
     Route: 048
     Dates: start: 20080603, end: 20080606
  3. INIPOMP [Suspect]
     Dosage: 40MG PER DAY
     Route: 048
     Dates: start: 20080603, end: 20080606
  4. ROCEPHIN [Suspect]
     Indication: ANTIBIOTIC THERAPY
     Dosage: 1G PER DAY
     Route: 042
     Dates: start: 20080604, end: 20080606
  5. BRICANYL [Concomitant]
     Route: 055
     Dates: start: 20080603, end: 20080618
  6. COZAAR [Concomitant]
     Dosage: 50MG PER DAY
     Route: 048
     Dates: start: 20080603, end: 20080618
  7. AMLOD [Concomitant]
     Dosage: 5MG PER DAY
     Route: 048
     Dates: start: 20080603, end: 20080612
  8. KARDEGIC [Concomitant]
     Indication: THROMBOSIS
     Dosage: 75MG PER DAY
     Route: 048
     Dates: start: 20080604, end: 20080606
  9. TAHOR [Concomitant]
     Dosage: 2TAB PER DAY
     Route: 048
     Dates: start: 20080604, end: 20080612
  10. DOLIPRANE [Concomitant]
     Indication: PAIN
     Dosage: 1G THREE TIMES PER DAY
     Route: 048
     Dates: start: 20080605, end: 20080618

REACTIONS (2)
  - MOUTH HAEMORRHAGE [None]
  - THROMBOCYTOPENIA [None]
